FAERS Safety Report 9563619 (Version 1)
Quarter: 2013Q3

REPORT INFORMATION
  Report Type: Spontaneous
  Country: US (occurrence: None)
  Receive Date: 20130919
  Receipt Date: 20130919
  Transmission Date: 20140515
  Serious: Yes (Life-Threatening)
  Sender: FDA-Public Use
  Company Number: 2013086KS

PATIENT
  Age: 65 Year
  Sex: Male

DRUGS (6)
  1. CHLORHEXIDINE GLUCONATE [Suspect]
     Indication: ANTIMYOCARDIAL ANTIBODY
     Route: 048
  2. METOPROLOL [Concomitant]
  3. CAPTOPRIL [Concomitant]
  4. ASPIRIN [Concomitant]
  5. ATORVASTATIN [Concomitant]
  6. NAPROXEN [Concomitant]

REACTIONS (3)
  - Hypotension [None]
  - Tachycardia [None]
  - Generalised erythema [None]
